FAERS Safety Report 5979366-7 (Version None)
Quarter: 2008Q4

REPORT INFORMATION
  Report Type: 
  Country: None (occurrence: None)
  Receive Date: 20081204
  Receipt Date: 20081122
  Transmission Date: 20090506
  Serious: Yes (Other)
  Sender: FDA-Public Use
  Company Number: IT-GENENTECH-271295

PATIENT
  Sex: Female

DRUGS (8)
  1. BEVACIZUMAB [Suspect]
     Indication: BREAST CANCER
     Dosage: 915 MG, Q21D
     Route: 042
     Dates: start: 20080912
  2. HERCEPTIN [Suspect]
     Indication: BREAST CANCER
     Dosage: 360 MG, Q21D
     Route: 042
     Dates: start: 20080911
  3. HERCEPTIN [Suspect]
     Dosage: 488 MG, Q21D
     Route: 042
  4. DOCETAXEL [Suspect]
     Indication: BREAST CANCER
     Dosage: 164 MG, Q21D
     Route: 042
     Dates: start: 20080912
  5. DOCETAXEL [Suspect]
     Dosage: 120 MG, Q21D
  6. AMOXICILINA [Concomitant]
     Indication: DRUG USE FOR UNKNOWN INDICATION
     Dosage: UNK
     Dates: start: 20080918
  7. CALCIUM NOS/CHOLECALCIFEROL [Concomitant]
     Indication: DRUG USE FOR UNKNOWN INDICATION
     Dosage: UNK
     Dates: start: 20080101
  8. FLUTICASONE PROPIONATE/SALMETEROL XINAFOATE [Concomitant]
     Indication: DRUG USE FOR UNKNOWN INDICATION
     Dosage: UNK

REACTIONS (2)
  - PYREXIA [None]
  - STOMATITIS [None]
